FAERS Safety Report 12285859 (Version 4)
Quarter: 2016Q3

REPORT INFORMATION
  Report Type: Spontaneous
  Country: JP (occurrence: JP)
  Receive Date: 20160420
  Receipt Date: 20160928
  Transmission Date: 20161109
  Serious: Yes (Other)
  Sender: FDA-Public Use
  Company Number: JP-GLAXOSMITHKLINE-JP2016JPN051251

PATIENT
  Age: 64 Year
  Sex: Male
  Weight: 64 kg

DRUGS (13)
  1. GLAKAY [Concomitant]
     Active Substance: MENATETRENONE
     Dosage: 15 MG, TID
  2. HEPSERA [Suspect]
     Active Substance: ADEFOVIR DIPIVOXIL
     Dosage: 10 MG, QOD
     Route: 048
     Dates: start: 20151016, end: 20160414
  3. OMEPRAL [Concomitant]
     Active Substance: OMEPRAZOLE
     Dosage: 10 MG, QD
  4. ZEFIX [Concomitant]
     Active Substance: LAMIVUDINE
     Indication: CHRONIC HEPATITIS B
     Dosage: 100 MG, QD
  5. LIVACT [Concomitant]
     Active Substance: AMINO ACIDS
     Dosage: 4.15 G, TID
  6. URSO [Concomitant]
     Active Substance: URSODIOL
     Dosage: 300 MG, 1D
  7. PROMAC (JAPAN) [Concomitant]
     Dosage: 75 MG, BID
  8. BASEN OD [Concomitant]
     Active Substance: VOGLIBOSE
     Dosage: 0.3 MG, TID
  9. UNKNOWN DRUG [Concomitant]
     Active Substance: UNSPECIFIED INGREDIENT
  10. MONILAC [Concomitant]
     Active Substance: LACTULOSE
     Dosage: 20 ML, QD
  11. HEPSERA [Suspect]
     Active Substance: ADEFOVIR DIPIVOXIL
     Indication: CHRONIC HEPATITIS B
     Dosage: 10 MG, 1D
     Route: 048
     Dates: start: 20140606, end: 20151015
  12. MICARDIS [Concomitant]
     Active Substance: TELMISARTAN
     Dosage: 80 MG, QD
  13. AMLODIN [Concomitant]
     Active Substance: AMLODIPINE BESYLATE
     Dosage: 2.5 MG, QD

REACTIONS (2)
  - Fanconi syndrome acquired [Unknown]
  - Blood creatinine increased [Not Recovered/Not Resolved]

NARRATIVE: CASE EVENT DATE: 20141211
